FAERS Safety Report 5073475-5 (Version None)
Quarter: 2006Q3

REPORT INFORMATION
  Report Type: 
  Country: None (occurrence: None)
  Receive Date: 20060808
  Receipt Date: 20060727
  Transmission Date: 20061208
  Serious: Yes (Hospitalization)
  Sender: FDA-Public Use
  Company Number: AU-BRISTOL-MYERS SQUIBB COMPANY-13456488

PATIENT
  Age: 38 Year
  Sex: Male
  Weight: 43 kg

DRUGS (5)
  1. VIDEX EC [Suspect]
     Indication: HIV INFECTION
     Dosage: DRUG STOPPED 2-3 WEEKS.
     Route: 048
     Dates: start: 20041015
  2. TENOFOVIR [Suspect]
     Indication: HIV INFECTION
     Dosage: DRUG STOPPED FOR 2-3 WEEKS.
     Route: 048
     Dates: start: 20040815
  3. NEVIRAPINE [Suspect]
     Indication: HIV INFECTION
     Route: 048
     Dates: start: 20041015
  4. ETHAMBUTOL HYDROCHLORIDE [Suspect]
     Indication: MYCOBACTERIUM AVIUM COMPLEX INFECTION
     Route: 048
     Dates: start: 20040815
  5. CLOPIXOL [Concomitant]
     Indication: NEUROSIS
     Dosage: DOSE STOPPED FOR 2-3 WEEKS.
     Route: 030

REACTIONS (2)
  - RENAL FAILURE [None]
  - RENAL TUBULAR NECROSIS [None]
